FAERS Safety Report 16200311 (Version 1)
Quarter: 2019Q2

REPORT INFORMATION
  Report Type: Spontaneous
  Country: FR (occurrence: FR)
  Receive Date: 20190416
  Receipt Date: 20190416
  Transmission Date: 20190711
  Serious: Yes (Hospitalization)
  Sender: FDA-Public Use
  Company Number: FR-SUN PHARMACEUTICAL INDUSTRIES LTD-2019RR-205308

PATIENT
  Age: 82 Year
  Sex: Female
  Weight: 79 kg

DRUGS (5)
  1. ATORVASTATINE [Suspect]
     Active Substance: ATORVASTATIN
     Indication: CEREBROVASCULAR ACCIDENT
     Dosage: A=, 80 MG DAILY
     Route: 048
     Dates: start: 20181206, end: 20190211
  2. PARACETAMOL [Suspect]
     Active Substance: ACETAMINOPHEN
     Indication: PAIN
     Dosage: 4 GRAM, DAILY
     Route: 048
     Dates: start: 20181231
  3. XARELTO [Suspect]
     Active Substance: RIVAROXABAN
     Indication: ATRIAL FIBRILLATION
     Dosage: 20 MILLIGRAM, DAILY
     Route: 048
     Dates: start: 20181206, end: 20190211
  4. CANDESARTAN. [Suspect]
     Active Substance: CANDESARTAN
     Indication: HYPERTENSION
     Dosage: 16 MILLIGRAM, DAILY
     Route: 048
     Dates: end: 20190211
  5. TAMIFLU [Suspect]
     Active Substance: OSELTAMIVIR PHOSPHATE
     Indication: ANTIVIRAL PROPHYLAXIS
     Dosage: NP, 75 MG DAILY
     Route: 048
     Dates: start: 20190129, end: 20190208

REACTIONS (2)
  - Hepatitis acute [Recovering/Resolving]
  - Acute kidney injury [Not Recovered/Not Resolved]

NARRATIVE: CASE EVENT DATE: 20190209
